FAERS Safety Report 24410168 (Version 3)
Quarter: 2025Q1

REPORT INFORMATION
  Report Type: Report from Study
  Country: US (occurrence: US)
  Receive Date: 20241008
  Receipt Date: 20250103
  Transmission Date: 20250409
  Serious: Yes (Other)
  Sender: DECIPHERA PHARMACEUTICALS
  Company Number: US-DECIPHERA PHARMACEUTICALS LLC-2024US000842

PATIENT
  Age: 68 Year
  Sex: Male
  Weight: 148.9 kg

DRUGS (2)
  1. QINLOCK [Suspect]
     Active Substance: RIPRETINIB
     Indication: Gastrointestinal stromal tumour
     Dosage: 150 MILLIGRAM, QD
     Route: 048
     Dates: start: 20240905, end: 2024
  2. QINLOCK [Suspect]
     Active Substance: RIPRETINIB
     Indication: Soft tissue sarcoma
     Dosage: 100 MILLIGRAM, QD
     Route: 048
     Dates: start: 2024

REACTIONS (13)
  - Diabetes mellitus [Unknown]
  - Oropharyngeal pain [Not Recovered/Not Resolved]
  - Memory impairment [Not Recovered/Not Resolved]
  - Brain fog [Not Recovered/Not Resolved]
  - Rhinorrhoea [Not Recovered/Not Resolved]
  - Abdominal discomfort [Not Recovered/Not Resolved]
  - Pain [Unknown]
  - Photosensitivity reaction [Not Recovered/Not Resolved]
  - Myalgia [Not Recovered/Not Resolved]
  - Fatigue [Not Recovered/Not Resolved]
  - Arthralgia [Not Recovered/Not Resolved]
  - Alopecia [Unknown]
  - Underdose [Unknown]

NARRATIVE: CASE EVENT DATE: 20240101
